FAERS Safety Report 13192737 (Version 2)
Quarter: 2017Q2

REPORT INFORMATION
  Report Type: Spontaneous
  Country: US (occurrence: US)
  Receive Date: 20170207
  Receipt Date: 20170419
  Transmission Date: 20170830
  Serious: Yes (Hospitalization)
  Sender: FDA-Public Use
  Company Number: US-TAIHO ONCOLOGY INC-EU-2017-00179

PATIENT
  Age: 58 Year
  Sex: Male

DRUGS (9)
  1. MAG-OX [Concomitant]
     Active Substance: MAGNESIUM OXIDE
     Dosage: NI
  2. LONSURF [Suspect]
     Active Substance: TIPIRACIL HYDROCHLORIDE\TRIFLURIDINE
     Indication: COLON CANCER METASTATIC
     Route: 048
     Dates: start: 20161114, end: 20170113
  3. CALCIUM [Concomitant]
     Active Substance: CALCIUM
     Dosage: NI
  4. PROTONIX [Concomitant]
     Active Substance: PANTOPRAZOLE SODIUM
     Dosage: NI
  5. LONSURF [Suspect]
     Active Substance: TIPIRACIL HYDROCHLORIDE\TRIFLURIDINE
     Indication: COLON CANCER METASTATIC
  6. IMODIUM [Concomitant]
     Active Substance: LOPERAMIDE HYDROCHLORIDE
     Dosage: NI
  7. DOCUSATE [Concomitant]
     Active Substance: DOCUSATE
     Dosage: NI
  8. COUMADIN [Suspect]
     Active Substance: WARFARIN SODIUM
     Dosage: NI
  9. PARACETAMOL [Concomitant]
     Active Substance: ACETAMINOPHEN
     Dosage: NI

REACTIONS (2)
  - Pelvic venous thrombosis [Not Recovered/Not Resolved]
  - Deep vein thrombosis [Not Recovered/Not Resolved]

NARRATIVE: CASE EVENT DATE: 20170120
